FAERS Safety Report 24264974 (Version 1)
Quarter: 2024Q3

REPORT INFORMATION
  Report Type: Spontaneous
  Country: US (occurrence: US)
  Receive Date: 20240829
  Receipt Date: 20240829
  Transmission Date: 20241017
  Serious: No
  Sender: AKCEA THERAPEUTICS
  Company Number: US-AKCEA THERAPEUTICS, INC.-2024IS001511

PATIENT

DRUGS (1)
  1. TEGSEDI [Suspect]
     Active Substance: INOTERSEN SODIUM
     Indication: Hereditary neuropathic amyloidosis
     Dosage: 284 MILLIGRAM, QW
     Route: 058
     Dates: start: 20190408

REACTIONS (5)
  - Urinary sediment present [Unknown]
  - Blood bilirubin abnormal [Unknown]
  - Urinary casts [Recovered/Resolved]
  - Blood urine present [Unknown]
  - Urine protein/creatinine ratio increased [Unknown]
